FAERS Safety Report 9289671 (Version 1)
Quarter: 2013Q2

REPORT INFORMATION
  Report Type: Spontaneous
  Country: US (occurrence: US)
  Receive Date: 20130515
  Receipt Date: 20130515
  Transmission Date: 20140414
  Serious: No
  Sender: FDA-Public Use
  Company Number: US-B.I. PHARMACEUTICALS,INC./RIDGEFIELD-2013-BI-13352BP

PATIENT
  Age: 76 Year
  Sex: Female

DRUGS (7)
  1. SPIRIVA [Suspect]
     Indication: BRONCHITIS CHRONIC
     Dosage: 18 MCG
     Route: 055
     Dates: start: 2011, end: 201204
  2. SPIRIVA [Suspect]
     Dosage: 18 MCG
     Route: 055
     Dates: start: 201207
  3. ALPRAZOLAM [Concomitant]
     Route: 048
  4. FISH OIL [Concomitant]
     Route: 048
  5. DIOVAN [Concomitant]
     Route: 048
  6. CALCIUM [Concomitant]
     Route: 048
  7. ICAPS WITH LUETIN [Concomitant]

REACTIONS (2)
  - Drug ineffective [Recovered/Resolved]
  - Palpitations [Recovered/Resolved]
